FAERS Safety Report 9830242 (Version 5)
Quarter: 2014Q1

REPORT INFORMATION
  Report Type: Report from Study
  Country: US (occurrence: US)
  Receive Date: 20140120
  Receipt Date: 20140211
  Transmission Date: 20141002
  Serious: Yes (Hospitalization)
  Sender: FDA-Public Use
  Company Number: US-ACTELION-A-US2014-93848

PATIENT
  Age: 48 Year
  Sex: Female

DRUGS (5)
  1. VENTAVIS [Suspect]
     Indication: PULMONARY ARTERIAL HYPERTENSION
     Dosage: UNK
     Route: 055
  2. OPSUMIT [Suspect]
     Indication: PULMONARY ARTERIAL HYPERTENSION
     Dosage: UNK
     Route: 048
     Dates: start: 20131118
  3. ADCIRCA [Concomitant]
  4. LETAIRIS [Concomitant]
  5. COUMADIN [Concomitant]

REACTIONS (3)
  - Mitral valve replacement [Recovered/Resolved]
  - Cardiac valve rupture [Recovered/Resolved]
  - Asthenia [Recovered/Resolved]
